FAERS Safety Report 9407996 (Version 1)
Quarter: 2013Q2

REPORT INFORMATION
  Report Type: Spontaneous
  Country: FR (occurrence: None)
  Receive Date: 20130422
  Receipt Date: 20130422
  Transmission Date: 20140414
  Serious: Yes (Other)
  Sender: FDA-Public Use
  Company Number: JPI-P-011083

PATIENT
  Age: 43 Year
  Sex: Female

DRUGS (4)
  1. XYREM [Suspect]
     Indication: CATAPLEXY
     Dosage: (2.25 GM, 2 IN 1 D)
     Route: 048
     Dates: start: 2010, end: 2010
  2. TERONAC (MAZINDOL) [Suspect]
     Indication: PRODUCT USED FOR UNKNOWN INDICATION
     Dates: start: 201006
  3. MODAFINIL [Concomitant]
  4. CLOMIPRAMINE HYDROCHLORIDE [Concomitant]

REACTIONS (11)
  - Hypoaesthesia [None]
  - Skin discolouration [None]
  - Sensory loss [None]
  - Dry skin [None]
  - Balance disorder [None]
  - Poor peripheral circulation [None]
  - Tremor [None]
  - Asphyxia [None]
  - Dyspnoea [None]
  - Inappropriate schedule of drug administration [None]
  - Muscle tightness [None]
